FAERS Safety Report 6971928-3 (Version None)
Quarter: 2010Q3

REPORT INFORMATION
  Report Type: 
  Country: None (occurrence: None)
  Receive Date: 20100908
  Receipt Date: 20100830
  Transmission Date: 20110219
  Serious: Yes (Hospitalization)
  Sender: FDA-Public Use
  Company Number: FR-ABBOTT-10P-056-0667877-00

PATIENT
  Age: 80 Year
  Sex: Female

DRUGS (7)
  1. DEPAKENE [Suspect]
     Indication: ABNORMAL BEHAVIOUR
     Dosage: 500MG GASTRO-RESISTANT TABLET, TWICE/DAY
     Route: 048
     Dates: start: 20100401
  2. SERESTA [Concomitant]
     Indication: PRODUCT USED FOR UNKNOWN INDICATION
     Dates: start: 20100401
  3. NORSET [Concomitant]
     Indication: PRODUCT USED FOR UNKNOWN INDICATION
  4. DIFFU K [Concomitant]
     Indication: PRODUCT USED FOR UNKNOWN INDICATION
  5. EXELON [Concomitant]
     Indication: PRODUCT USED FOR UNKNOWN INDICATION
  6. PRAVASTATIN [Concomitant]
     Indication: PRODUCT USED FOR UNKNOWN INDICATION
  7. RIVOTRIL [Concomitant]
     Indication: PRODUCT USED FOR UNKNOWN INDICATION

REACTIONS (5)
  - DRUG LEVEL INCREASED [None]
  - FALL [None]
  - JOINT INJURY [None]
  - PARKINSONISM [None]
  - SOMNOLENCE [None]
